FAERS Safety Report 4357920-6 (Version None)
Quarter: 2004Q2

REPORT INFORMATION
  Report Type: 
  Country: None (occurrence: None)
  Receive Date: 20040510
  Receipt Date: 20040503
  Transmission Date: 20050107
  Serious: Yes (Hospitalization)
  Sender: FDA-Public Use
  Company Number: 2004211467US

PATIENT
  Age: 73 Year
  Sex: Female

DRUGS (9)
  1. DETROL LA [Suspect]
     Indication: BLADDER DISORDER
     Dosage: 2 MG, QD
     Dates: end: 20040101
  2. ASACOL [Concomitant]
  3. VERAPAMIL [Concomitant]
  4. LIPITOR [Concomitant]
  5. URISPAS [Concomitant]
  6. IBUPROFEN [Concomitant]
  7. VITAMIN E [Concomitant]
  8. MULTIVITAMINS (PANTHENOL, RETINOL, ERGOCALCIFEROL) [Concomitant]
  9. ASPIRIN [Concomitant]

REACTIONS (2)
  - GALLBLADDER OPERATION [None]
  - UNEVALUABLE EVENT [None]
